FAERS Safety Report 6366678-0 (Version None)
Quarter: 2009Q3

REPORT INFORMATION
  Report Type: 
  Country: None (occurrence: None)
  Receive Date: 20090915
  Receipt Date: 20090903
  Transmission Date: 20100115
  Serious: Yes (Other)
  Sender: FDA-Public Use
  Company Number: 2009-03634

PATIENT
  Age: 64 Year
  Sex: Male
  Weight: 60 kg

DRUGS (2)
  1. VELCADE [Suspect]
     Indication: MULTIPLE MYELOMA
     Dosage: INTRAVENOUS
     Route: 042
     Dates: start: 20010101
  2. INTERFERON BETA (INTERFERON BETA) [Concomitant]

REACTIONS (4)
  - ERYTHROMELALGIA [None]
  - GAIT DISTURBANCE [None]
  - NEUROPATHY PERIPHERAL [None]
  - NO THERAPEUTIC RESPONSE [None]
